FAERS Safety Report 19665785 (Version 1)
Quarter: 2021Q3

REPORT INFORMATION
  Report Type: Spontaneous
  Country: ES (occurrence: ES)
  Receive Date: 20210806
  Receipt Date: 20210806
  Transmission Date: 20211014
  Serious: Yes (Hospitalization, Other)
  Sender: FDA-Public Use
  Company Number: ES-VISTAPHARM, INC.-VER202108-001762

PATIENT
  Age: 65 Year

DRUGS (1)
  1. HYDROCODONE AND ACETAMINOPHEN [Suspect]
     Active Substance: ACETAMINOPHEN\HYDROCODONE
     Indication: PRODUCT USED FOR UNKNOWN INDICATION
     Dosage: UNKNOWN (TOTAL DOSE 20,000 MG)
     Route: 065

REACTIONS (3)
  - Toxicity to various agents [Unknown]
  - Procalcitonin increased [Unknown]
  - Liver injury [Unknown]
